FAERS Safety Report 5176555-9 (Version None)
Quarter: 2006Q4

REPORT INFORMATION
  Report Type: 
  Country: None (occurrence: None)
  Receive Date: 20061207
  Receipt Date: 20061124
  Transmission Date: 20070319
  Serious: Yes (Hospitalization, Other)
  Sender: FDA-Public Use
  Company Number: 2006145771

PATIENT
  Age: 56 Year
  Sex: Male

DRUGS (3)
  1. PREDNISOLONE [Suspect]
     Indication: HEART TRANSPLANT
     Dosage: 15 MG (15 MG, 1 IN 1 D)
     Dates: start: 20040201
  2. CYCLOSPORINE [Suspect]
     Indication: HEART TRANSPLANT
     Dosage: 10 MG/KG (2 IN 1 D)
     Dates: start: 20040201
  3. MYCOPHENOLIC ACID [Suspect]
     Indication: HEART TRANSPLANT
     Dosage: 1.25G; 2.5G (1 IN 1 D)
     Dates: start: 20040201

REACTIONS (14)
  - ACINETOBACTER INFECTION [None]
  - CEREBRAL INFARCTION [None]
  - CLOSTRIDIUM DIFFICILE COLITIS [None]
  - COAGULOPATHY [None]
  - GRAND MAL CONVULSION [None]
  - MEDIASTINITIS [None]
  - NECROSIS [None]
  - PATHOGEN RESISTANCE [None]
  - POSTOPERATIVE INFECTION [None]
  - PULMONARY OEDEMA [None]
  - RENAL FAILURE ACUTE [None]
  - RESPIRATORY DISTRESS [None]
  - SEPSIS [None]
  - WOUND DEBRIDEMENT [None]
